FAERS Safety Report 9130916 (Version 1)
Quarter: 2013Q1

REPORT INFORMATION
  Report Type: Spontaneous
  Country: US (occurrence: US)
  Receive Date: 20130301
  Receipt Date: 20130301
  Transmission Date: 20140127
  Serious: Yes (Hospitalization)
  Sender: FDA-Public Use
  Company Number: 2013SP002577

PATIENT
  Age: 54 Year
  Sex: Male

DRUGS (8)
  1. FLUOROURACIL [Suspect]
     Indication: ADENOCARCINOMA PANCREAS
  2. OXALIPLATIN [Suspect]
     Indication: ADENOCARCINOMA PANCREAS
  3. LEUCOVORIN /00566702/ [Suspect]
     Indication: ADENOCARCINOMA PANCREAS
  4. DEXAMETHASONE [Suspect]
     Indication: ANTIEMETIC SUPPORTIVE CARE
  5. METFORMIN [Concomitant]
     Indication: TYPE 2 DIABETES MELLITUS
  6. GLIMEPIRIDE [Concomitant]
     Indication: TYPE 2 DIABETES MELLITUS
  7. EXENATIDE [Concomitant]
     Indication: TYPE 2 DIABETES MELLITUS
  8. INSULIN [Concomitant]
     Indication: TYPE 2 DIABETES MELLITUS

REACTIONS (3)
  - Blood glucose increased [Recovering/Resolving]
  - Blood lactic acid increased [Unknown]
  - Nausea [Unknown]
